FAERS Safety Report 6775092-5 (Version None)
Quarter: 2010Q2

REPORT INFORMATION
  Report Type: 
  Country: None (occurrence: None)
  Receive Date: 20100617
  Receipt Date: 20100525
  Transmission Date: 20101027
  Serious: Yes (Hospitalization)
  Sender: FDA-Public Use
  Company Number: B0660692A

PATIENT
  Age: 58 Year
  Sex: Female
  Weight: 89.7 kg

DRUGS (13)
  1. BLINDED TRIAL MEDICATION [Suspect]
     Indication: DRUG USE FOR UNKNOWN INDICATION
     Dates: start: 20100203
  2. KEPPRA [Suspect]
     Indication: DRUG USE FOR UNKNOWN INDICATION
  3. UNKNOWN MEDICATION [Suspect]
  4. DECADRON [Suspect]
  5. MS CONTIN [Suspect]
  6. REMERON [Suspect]
  7. DILANTIN [Suspect]
  8. LEVAQUIN [Suspect]
  9. REGLAN [Suspect]
  10. ADVAIR DISKUS 100/50 [Suspect]
  11. ALBUTEROL [Suspect]
  12. SPIRIVA [Suspect]
  13. RADIOTHERAPY [Suspect]
     Dates: start: 20100203

REACTIONS (2)
  - DYSPNOEA [None]
  - PULMONARY EMBOLISM [None]
